FAERS Safety Report 11835125 (Version 2)
Quarter: 2015Q4

REPORT INFORMATION
  Report Type: Spontaneous
  Country: US (occurrence: US)
  Receive Date: 20151215
  Receipt Date: 20151216
  Transmission Date: 20160305
  Serious: No
  Sender: FDA-Public Use
  Company Number: US-009507513-1512USA006035

PATIENT
  Sex: Female

DRUGS (1)
  1. NEXPLANON [Suspect]
     Active Substance: ETONOGESTREL
     Indication: CONTRACEPTION
     Dosage: 68MG, ONE ROD PER 3 YEAR
     Route: 059
     Dates: start: 20140720

REACTIONS (2)
  - Menstruation irregular [Unknown]
  - Medical device complication [Not Recovered/Not Resolved]
